FAERS Safety Report 6816769-2 (Version None)
Quarter: 2010Q3

REPORT INFORMATION
  Report Type: 
  Country: None (occurrence: None)
  Receive Date: 20100706
  Receipt Date: 20100628
  Transmission Date: 20110219
  Serious: Yes (Hospitalization)
  Sender: FDA-Public Use
  Company Number: JP-ASTRAZENECA-2010SE30216

PATIENT
  Age: 85 Year
  Sex: Male

DRUGS (1)
  1. OMEPRAL [Suspect]
     Indication: REFLUX OESOPHAGITIS
     Route: 048
     Dates: start: 20060101, end: 20100501

REACTIONS (1)
  - COLITIS COLLAGENOUS [None]
